FAERS Safety Report 18192625 (Version 2)
Quarter: 2020Q4

REPORT INFORMATION
  Report Type: Spontaneous
  Country: US (occurrence: US)
  Receive Date: 20200825
  Receipt Date: 20201005
  Transmission Date: 20210113
  Serious: No
  Sender: FDA-Public Use
  Company Number: US-PFIZER INC-2020327248

PATIENT
  Sex: Female

DRUGS (1)
  1. DICLOFENAC EPOLAMINE [Suspect]
     Active Substance: DICLOFENAC EPOLAMINE
     Indication: FIBROMYALGIA
     Dosage: UNK

REACTIONS (2)
  - Product use in unapproved indication [Unknown]
  - Off label use [Unknown]
